FAERS Safety Report 6493540-5 (Version None)
Quarter: 2009Q4

REPORT INFORMATION
  Report Type: 
  Country: None (occurrence: None)
  Receive Date: 20091214
  Receipt Date: 20091201
  Transmission Date: 20100525
  Serious: Yes (Other)
  Sender: FDA-Public Use
  Company Number: CHPA2009US22868

PATIENT
  Age: 60 Year
  Sex: Male
  Weight: 81.633 kg

DRUGS (1)
  1. EXCEDRIN (MIGRAINE) [Suspect]
     Indication: BACK PAIN
     Dosage: UNK, UNK
     Route: 048
     Dates: end: 20091130

REACTIONS (6)
  - DYSPNOEA [None]
  - EYE SWELLING [None]
  - HYPOAESTHESIA [None]
  - LIP SWELLING [None]
  - PHARYNGEAL OEDEMA [None]
  - SWELLING FACE [None]
